FAERS Safety Report 5050789-6 (Version None)
Quarter: 2006Q3

REPORT INFORMATION
  Report Type: 
  Country: None (occurrence: None)
  Receive Date: 20060707
  Receipt Date: 20060630
  Transmission Date: 20061208
  Serious: Yes (Hospitalization)
  Sender: FDA-Public Use
  Company Number: HQWYE017614APR05

PATIENT
  Age: 64 Year
  Sex: Male

DRUGS (6)
  1. EUPANTOL (PANTOPRZAZOLE, TABLET, DELAYED RELEASE) [Suspect]
     Indication: BACK PAIN
     Dosage: 40 MG 1X PER 1 DAY
     Route: 048
     Dates: start: 20050114, end: 20050124
  2. AMLOR (AMLODIINE BESILATE) [Concomitant]
  3. FRACTAL (FLUVASTATIN,) [Suspect]
     Dosage: 1 DOSAGE FORM 1X PER 1 DAY
     Route: 048
     Dates: end: 20051101
  4. NEXEN (NIMESULIDE,) [Suspect]
     Indication: BACK PAIN
     Dosage: 100 MG ^SOME TIME (S) SOME DF^
     Route: 048
     Dates: start: 20050114, end: 20050124
  5. THIOCOLCHICOSIDE (THIOCOLCHICOSIDE) [Suspect]
     Indication: BACK PAIN
     Dosage: ^SOME TIME (S) SOME DF^
     Route: 048
     Dates: start: 20050114, end: 20050124
  6. ZAMADOL (TRAMADOL,) [Suspect]
     Indication: BACK PAIN
     Dosage: ^SOME TIME (S) SOME DF^
     Route: 048
     Dates: start: 20050114, end: 20050124

REACTIONS (2)
  - BLOOD IMMUNOGLOBULIN E INCREASED [None]
  - PEMPHIGOID [None]
